FAERS Safety Report 5400501-3 (Version None)
Quarter: 2007Q3

REPORT INFORMATION
  Report Type: 
  Country: None (occurrence: None)
  Receive Date: 20070725
  Receipt Date: 20070709
  Transmission Date: 20080115
  Serious: Yes (Other)
  Sender: FDA-Public Use
  Company Number: DSM-2007-00355

PATIENT
  Age: 38 Year
  Sex: Male

DRUGS (2)
  1. OLMETEC [Suspect]
     Indication: HYPERTENSION
     Dosage: (1 IN 1 D), ORAL
     Route: 048
  2. LITHIUM CARBONATE [Concomitant]

REACTIONS (1)
  - LIBIDO DECREASED [None]
